FAERS Safety Report 19299551 (Version 1)
Quarter: 2021Q2

REPORT INFORMATION
  Report Type: Spontaneous
  Country: CA (occurrence: CA)
  Receive Date: 20210525
  Receipt Date: 20210525
  Transmission Date: 20210717
  Serious: Yes (Death, Other)
  Sender: FDA-Public Use
  Company Number: CA-TEVA-2021-CA-1913599

PATIENT
  Sex: Female

DRUGS (8)
  1. ATOMOXETINE. [Concomitant]
     Active Substance: ATOMOXETINE HYDROCHLORIDE
  2. CITALOPRAM [Concomitant]
     Active Substance: CITALOPRAM HYDROBROMIDE
  3. QUETIAPINE FUMARATE. [Suspect]
     Active Substance: QUETIAPINE FUMARATE
     Indication: COMPLETED SUICIDE
     Dosage: 500 MILLIGRAM DAILY;
     Route: 048
  4. ASPIRIN. [Suspect]
     Active Substance: ASPIRIN
     Indication: COMPLETED SUICIDE
     Route: 065
  5. QUETIAPINE FUMARATE. [Suspect]
     Active Substance: QUETIAPINE FUMARATE
     Indication: COMPLETED SUICIDE
     Dosage: 26 MILLIGRAM DAILY;
     Route: 048
  6. ISONIAZID. [Concomitant]
     Active Substance: ISONIAZID
  7. ALCOHOL. [Suspect]
     Active Substance: ALCOHOL
     Indication: COMPLETED SUICIDE
     Route: 048
  8. ACETAMINOPHEN. [Suspect]
     Active Substance: ACETAMINOPHEN
     Indication: COMPLETED SUICIDE
     Route: 048

REACTIONS (22)
  - Encephalopathy [Fatal]
  - Hepatitis [Fatal]
  - Liver injury [Fatal]
  - Nausea [Fatal]
  - Pericardial effusion [Fatal]
  - Seizure [Fatal]
  - Face oedema [Fatal]
  - Treatment noncompliance [Fatal]
  - Toxicity to various agents [Fatal]
  - Agitation [Fatal]
  - Cardiac arrest [Fatal]
  - Multiple organ dysfunction syndrome [Fatal]
  - Myalgia [Fatal]
  - Oedema peripheral [Fatal]
  - Pleural effusion [Fatal]
  - Cardiac failure [Fatal]
  - Myocarditis [Fatal]
  - Overdose [Fatal]
  - Congestive hepatopathy [Fatal]
  - Hepatic failure [Fatal]
  - Completed suicide [Fatal]
  - Oxygen saturation decreased [Fatal]
